FAERS Safety Report 4654985-9 (Version None)
Quarter: 2005Q2

REPORT INFORMATION
  Report Type: 
  Country: None (occurrence: None)
  Receive Date: 20050504
  Receipt Date: 20050420
  Transmission Date: 20051028
  Serious: Yes (Death)
  Sender: FDA-Public Use
  Company Number: PAR_0016_2005

PATIENT
  Age: 80 Year
  Sex: Male

DRUGS (1)
  1. VASOLAN [Suspect]
     Dosage: 15 MG IV
     Route: 042
     Dates: start: 20040212, end: 20040212

REACTIONS (2)
  - HEART RATE DECREASED [None]
  - RESPIRATORY ARREST [None]
